FAERS Safety Report 21953615 (Version 1)
Quarter: 2023Q1

REPORT INFORMATION
  Report Type: Report from Study
  Country: US (occurrence: US)
  Receive Date: 20230204
  Receipt Date: 20230204
  Transmission Date: 20230417
  Serious: No
  Sender: FDA-Public Use
  Company Number: US-ACORDA-ACO_173574_2022

PATIENT
  Age: 48 Year
  Sex: Female

DRUGS (1)
  1. AMPYRA [Suspect]
     Active Substance: DALFAMPRIDINE
     Indication: Multiple sclerosis
     Dosage: 10 MILLIGRAM, Q 12 HRS
     Route: 065

REACTIONS (7)
  - Diarrhoea [Recovered/Resolved]
  - Product residue present [Unknown]
  - Temperature intolerance [Not Recovered/Not Resolved]
  - Product residue present [Unknown]
  - Abnormal faeces [Not Recovered/Not Resolved]
  - Unevaluable event [Unknown]
  - Insomnia [Not Recovered/Not Resolved]

NARRATIVE: CASE EVENT DATE: 20220901
